FAERS Safety Report 8336061-7 (Version None)
Quarter: 2012Q2

REPORT INFORMATION
  Report Type: 
  Country: None (occurrence: None)
  Receive Date: 20120501
  Receipt Date: 20120501
  Transmission Date: 20120825
  Serious: Yes (Hospitalization)
  Sender: FDA-Public Use
  Company Number: None

PATIENT
  Age: 84 Year
  Sex: Female
  Weight: 43.6 kg

DRUGS (10)
  1. ASPIRIN [Concomitant]
  2. CYMBALTA [Concomitant]
  3. TORADOL [Concomitant]
  4. DURAGESIC-100 [Suspect]
     Indication: PAIN
     Dosage: 24MCG DAILY ONCE CHRONIC
  5. DURAGESIC-100 [Suspect]
     Indication: HERPES ZOSTER
     Dosage: 24MCG DAILY ONCE CHRONIC
  6. BISACODYL [Concomitant]
  7. NTG SL [Concomitant]
  8. GABAPENTIN [Concomitant]
  9. LIDOCAINE [Concomitant]
  10. COREG [Concomitant]

REACTIONS (1)
  - MENTAL STATUS CHANGES [None]
